FAERS Safety Report 16930732 (Version 1)
Quarter: 2019Q4

REPORT INFORMATION
  Report Type: Spontaneous
  Country: US (occurrence: US)
  Receive Date: 20191017
  Receipt Date: 20191017
  Transmission Date: 20200122
  Serious: Yes (Hospitalization)
  Sender: FDA-Public Use
  Company Number: None

PATIENT
  Age: 76 Year
  Sex: Female
  Weight: 56.25 kg

DRUGS (1)
  1. VENOFER [Suspect]
     Active Substance: IRON SUCROSE
     Indication: ANAEMIA
     Dosage: ?          OTHER FREQUENCY:X 1 DOSE;?
     Route: 041
     Dates: start: 20191016, end: 20191016

REACTIONS (4)
  - Peripheral swelling [None]
  - Heart rate decreased [None]
  - Nausea [None]
  - Oxygen saturation decreased [None]

NARRATIVE: CASE EVENT DATE: 20191016
